FAERS Safety Report 19027512 (Version 1)
Quarter: 2021Q1

REPORT INFORMATION
  Report Type: Report from Study
  Country: PH (occurrence: PH)
  Receive Date: 20210318
  Receipt Date: 20210318
  Transmission Date: 20210420
  Serious: Yes (Other)
  Sender: FDA-Public Use
  Company Number: PH-JNJFOC-20210318493

PATIENT

DRUGS (2)
  1. DELAMANID [Suspect]
     Active Substance: DELAMANID
     Indication: TUBERCULOSIS
     Route: 065
  2. BEDAQUILINE [Suspect]
     Active Substance: BEDAQUILINE
     Indication: TUBERCULOSIS
     Route: 048

REACTIONS (7)
  - Off label use [Unknown]
  - Dizziness [Unknown]
  - Electrocardiogram QT prolonged [Unknown]
  - Nausea [Unknown]
  - Vomiting [Unknown]
  - Arthralgia [Unknown]
  - Hepatotoxicity [Unknown]
